FAERS Safety Report 9204641 (Version 1)
Quarter: 2013Q2

REPORT INFORMATION
  Report Type: Spontaneous
  Country: US (occurrence: None)
  Receive Date: 20130401
  Receipt Date: 20130401
  Transmission Date: 20140414
  Serious: Yes (Other)
  Sender: FDA-Public Use
  Company Number: None

PATIENT
  Age: 30 Year
  Sex: Female

DRUGS (1)
  1. EXJADE 500 MG NOVARTIS [Suspect]
     Indication: IRON OVERLOAD
     Dosage: 1500MG QD PO
     Route: 048
     Dates: start: 20130108

REACTIONS (3)
  - Dry skin [None]
  - Pruritus [None]
  - Abdominal pain [None]
